FAERS Safety Report 16653467 (Version 3)
Quarter: 2019Q3

REPORT INFORMATION
  Report Type: Spontaneous
  Country: IT (occurrence: IT)
  Receive Date: 20190731
  Receipt Date: 20190904
  Transmission Date: 20191004
  Serious: Yes (Death, Other)
  Sender: FDA-Public Use
  Company Number: IT-PFIZER INC-2019325419

PATIENT
  Age: 48 Year
  Sex: Male

DRUGS (7)
  1. VARGATEF [Suspect]
     Active Substance: NINTEDANIB
     Dosage: UNK
     Route: 065
     Dates: start: 20160926, end: 20170216
  2. ZOLEDRONIC ACID [Concomitant]
     Active Substance: ZOLEDRONIC ACID
     Dosage: UNK
     Dates: start: 20160923
  3. DOCETAXEL. [Suspect]
     Active Substance: DOCETAXEL
     Dosage: UNK (STRENGTH 75 MG/MQ)
     Dates: start: 20160115, end: 20160226
  4. VARGATEF [Suspect]
     Active Substance: NINTEDANIB
     Dosage: 400 MG, 1X/DAY
     Route: 065
     Dates: start: 20160115, end: 20160226
  5. VARGATEF [Suspect]
     Active Substance: NINTEDANIB
     Dosage: UNK
     Route: 065
     Dates: start: 20160414, end: 2016
  6. DOCETAXEL. [Suspect]
     Active Substance: DOCETAXEL
     Indication: CHEMOTHERAPY
     Dosage: UNK (75 MG/MQ)
     Dates: start: 20151109, end: 20151130
  7. VARGATEF [Suspect]
     Active Substance: NINTEDANIB
     Indication: CHEMOTHERAPY
     Dosage: 400 MG, 1X/DAY
     Route: 065
     Dates: start: 20151221

REACTIONS (5)
  - Gastrointestinal toxicity [Recovered/Resolved]
  - Neoplasm progression [Fatal]
  - Neurotoxicity [Not Recovered/Not Resolved]
  - Haematotoxicity [Recovered/Resolved]
  - Gastrointestinal toxicity [Recovered/Resolved]

NARRATIVE: CASE EVENT DATE: 201601
